FAERS Safety Report 23854489 (Version 1)
Quarter: 2024Q2

REPORT INFORMATION
  Report Type: Spontaneous
  Country: US (occurrence: US)
  Receive Date: 20240514
  Receipt Date: 20240514
  Transmission Date: 20240716
  Serious: No
  Sender: FDA-Public Use
  Company Number: US-HALEON-2173241

PATIENT
  Age: 3 Year
  Sex: Female
  Weight: 13.6 kg

DRUGS (1)
  1. BROMPHENIRAMINE MALEATE\PHENYLEPHRINE HYDROCHLORIDE [Suspect]
     Active Substance: BROMPHENIRAMINE MALEATE\PHENYLEPHRINE HYDROCHLORIDE
     Indication: Accidental exposure to product
     Dosage: ACCIDENTAL INGESTIONEXPDATE:20250731
     Route: 048
     Dates: start: 20240502

REACTIONS (1)
  - Accidental exposure to product [Unknown]

NARRATIVE: CASE EVENT DATE: 20240502
